FAERS Safety Report 7148261-2 (Version None)
Quarter: 2010Q4

REPORT INFORMATION
  Report Type: 
  Country: None (occurrence: None)
  Receive Date: 20101209
  Receipt Date: 20101207
  Transmission Date: 20110411
  Serious: Yes (Death)
  Sender: FDA-Public Use
  Company Number: PHHY2010US83242

PATIENT
  Sex: Female
  Weight: 44 kg

DRUGS (1)
  1. EXJADE [Suspect]
     Indication: LYMPHATIC DISORDER
     Dosage: 500 MG, UNK
     Route: 048
     Dates: start: 20090820, end: 20101109

REACTIONS (1)
  - DEATH [None]
